FAERS Safety Report 17684992 (Version 1)
Quarter: 2020Q2

REPORT INFORMATION
  Report Type: Spontaneous
  Country: IT (occurrence: IT)
  Receive Date: 20200420
  Receipt Date: 20200420
  Transmission Date: 20200714
  Serious: Yes (Hospitalization)
  Sender: FDA-Public Use
  Company Number: NVSC2020IT100068

PATIENT
  Age: 91 Year
  Sex: Female

DRUGS (1)
  1. TEGRETOL XR [Suspect]
     Active Substance: CARBAMAZEPINE
     Indication: EPILEPSY
     Dosage: 600 MG
     Route: 048
     Dates: start: 20191229, end: 20191229

REACTIONS (3)
  - Confusional state [Unknown]
  - Drug level increased [Unknown]
  - Medication error [Unknown]

NARRATIVE: CASE EVENT DATE: 20191229
